FAERS Safety Report 6024910-7 (Version None)
Quarter: 2008Q4

REPORT INFORMATION
  Report Type: 
  Country: None (occurrence: None)
  Receive Date: 20081231
  Receipt Date: 20081219
  Transmission Date: 20090506
  Serious: Yes (Disabling, Other)
  Sender: FDA-Public Use
  Company Number: CH-PFIZER INC-2006086297

PATIENT

DRUGS (1)
  1. DEPO-MEDROL [Suspect]
     Indication: ARACHNOIDITIS
     Dosage: 80 MG, UNK
     Route: 065
     Dates: start: 19970307

REACTIONS (10)
  - ANTINUCLEAR ANTIBODY INCREASED [None]
  - DRUG ADMINISTRATION ERROR [None]
  - FATIGUE [None]
  - FORMICATION [None]
  - INTERVERTEBRAL DISC PROTRUSION [None]
  - MUSCLE SPASMS [None]
  - NEURALGIA [None]
  - PAIN [None]
  - TENDONITIS [None]
  - TINNITUS [None]
